FAERS Safety Report 24579710 (Version 1)
Quarter: 2024Q4

REPORT INFORMATION
  Report Type: Spontaneous
  Country: CN (occurrence: CN)
  Receive Date: 20241105
  Receipt Date: 20241105
  Transmission Date: 20250114
  Serious: Yes (Other)
  Sender: SANDOZ
  Company Number: CN-002147023-NVSC2024CN212527

PATIENT
  Age: 49 Year
  Sex: Male
  Weight: 65 kg

DRUGS (1)
  1. TOBRADEX [Suspect]
     Active Substance: DEXAMETHASONE\TOBRAMYCIN
     Indication: Inflammation
     Dosage: 0.500 MG, TID
     Route: 047
     Dates: start: 20241010, end: 20241015

REACTIONS (6)
  - Photophobia [Recovering/Resolving]
  - Punctate keratitis [Recovering/Resolving]
  - Lacrimation increased [Recovering/Resolving]
  - Foreign body sensation in eyes [Recovering/Resolving]
  - Conjunctival hyperaemia [Recovering/Resolving]
  - Hypersensitivity [Recovering/Resolving]

NARRATIVE: CASE EVENT DATE: 20241015
